FAERS Safety Report 9790444 (Version 1)
Quarter: 2013Q4

REPORT INFORMATION
  Report Type: Spontaneous
  Country: US (occurrence: US)
  Receive Date: 20131231
  Receipt Date: 20131231
  Transmission Date: 20140711
  Serious: No
  Sender: FDA-Public Use
  Company Number: US-BAYER-2013-159154

PATIENT
  Sex: Female

DRUGS (9)
  1. ALEVE CAPLET [Suspect]
     Indication: ARTHRITIS
     Dosage: 2 DF, BID
     Route: 048
     Dates: start: 201312, end: 201312
  2. HYZAAR [Concomitant]
  3. SYNTHROID [Concomitant]
  4. LIPITOR [Concomitant]
  5. CALCIUM [Concomitant]
  6. POTASSIUM [Concomitant]
  7. OMERAP [Concomitant]
  8. ASPIRIN [Concomitant]
  9. VITAMIN C [Concomitant]

REACTIONS (1)
  - Extra dose administered [None]
